FAERS Safety Report 8805702 (Version 1)
Quarter: 2012Q4

REPORT INFORMATION
  Report Type: 
  Country: US (occurrence: US)
  Receive Date: 20120924
  Receipt Date: 20120924
  Transmission Date: 20130627
  Serious: Yes (Hospitalization, Other)
  Sender: FDA-Public Use
  Company Number: US-TEVA-359871USA

PATIENT
  Age: 37 Year
  Sex: Male

DRUGS (1)
  1. METHYLPREDNISOLONE [Suspect]
     Indication: NEUROMYELITIS OPTICA
     Dosage: 1 g/day over 4h
     Route: 041

REACTIONS (2)
  - Delirium [Not Recovered/Not Resolved]
  - Affective disorder [Unknown]
